FAERS Safety Report 5682529-1 (Version None)
Quarter: 2008Q1

REPORT INFORMATION
  Report Type: 
  Country: None (occurrence: None)
  Receive Date: 20080327
  Receipt Date: 20071213
  Transmission Date: 20080703
  Serious: No
  Sender: FDA-Public Use
  Company Number: US-BRISTOL-MYERS SQUIBB COMPANY-13981535

PATIENT
  Age: 43 Year
  Sex: Female

DRUGS (3)
  1. ORENCIA [Suspect]
     Indication: RHEUMATOID ARTHRITIS
     Dosage: DOSAGE 3 VIALS
     Route: 042
     Dates: start: 20070227, end: 20071024
  2. ZANTAC [Concomitant]
     Dosage: 1 WEEK PRIOR TO INFUSION
  3. CLARITIN [Concomitant]
     Dosage: 1 WEEK PRIOR TO INFUSION

REACTIONS (4)
  - CHEST DISCOMFORT [None]
  - HYPERSENSITIVITY [None]
  - HYPERTENSION [None]
  - OESOPHAGEAL PAIN [None]
